FAERS Safety Report 8386653-4 (Version None)
Quarter: 2012Q2

REPORT INFORMATION
  Report Type: 
  Country: None (occurrence: None)
  Receive Date: 20120525
  Receipt Date: 20120523
  Transmission Date: 20120825
  Serious: Yes (Other)
  Sender: FDA-Public Use
  Company Number: US-PFIZER INC-2012117177

PATIENT

DRUGS (4)
  1. PROTONIX [Suspect]
     Dosage: UNK
  2. PRILOSEC [Suspect]
     Dosage: UNK
  3. NEXIUM [Suspect]
     Dosage: UNK
  4. PREVACID [Suspect]
     Dosage: UNK

REACTIONS (2)
  - DRUG HYPERSENSITIVITY [None]
  - RASH [None]
